APPROVED DRUG PRODUCT: PROVENTIL
Active Ingredient: ALBUTEROL SULFATE
Strength: EQ 0.5% BASE **Federal Register determination that product was not discontinued or withdrawn for safety or effectiveness reasons**
Dosage Form/Route: SOLUTION;INHALATION
Application: N019243 | Product #001
Applicant: SCHERING CORP SUB SCHERING PLOUGH CORP
Approved: Jan 14, 1987 | RLD: Yes | RS: No | Type: DISCN